FAERS Safety Report 23565127 (Version 1)
Quarter: 2024Q1

REPORT INFORMATION
  Report Type: Spontaneous
  Country: US (occurrence: None)
  Receive Date: 20240223
  Receipt Date: 20240223
  Transmission Date: 20240410
  Serious: Yes (Other)
  Sender: FDA-Public Use
  Company Number: None

PATIENT
  Age: 57 Year
  Sex: Female
  Weight: 69.75 kg

DRUGS (14)
  1. OXYTROL [Suspect]
     Active Substance: OXYBUTYNIN
     Indication: Hypertonic bladder
     Dosage: OTHER QUANTITY : 3 PATCH(ES);?OTHER FREQUENCY : 1 PATCH PER 4 DAYS;?
     Route: 061
     Dates: start: 20240121, end: 20240211
  2. LOVASTATIN [Concomitant]
     Active Substance: LOVASTATIN
  3. EZETIMIBE [Concomitant]
     Active Substance: EZETIMIBE
  4. DILAUDID [Concomitant]
     Active Substance: HYDROMORPHONE HYDROCHLORIDE
  5. FLEXERIL [Concomitant]
     Active Substance: CYCLOBENZAPRINE HYDROCHLORIDE
  6. GABAPENTIN [Concomitant]
     Active Substance: GABAPENTIN
  7. LEVOTHYROXINE [Concomitant]
     Active Substance: LEVOTHYROXINE\LEVOTHYROXINE SODIUM
  8. DULOXETINE [Concomitant]
     Active Substance: DULOXETINE
  9. MORPHINE [Concomitant]
     Active Substance: MORPHINE
  10. BUPIVACAINE [Concomitant]
     Active Substance: BUPIVACAINE
  11. IRON\VITAMINS [Concomitant]
     Active Substance: IRON\VITAMINS
  12. Calcitrate with D3 [Concomitant]
  13. ASPIRIN [Concomitant]
     Active Substance: ASPIRIN
  14. IRON [Concomitant]
     Active Substance: IRON

REACTIONS (6)
  - Upper respiratory tract infection [None]
  - Muscle spasms [None]
  - Muscle spasms [None]
  - Abdominal pain upper [None]
  - Joint stiffness [None]
  - Muscle spasms [None]

NARRATIVE: CASE EVENT DATE: 20240210
